FAERS Safety Report 7862754 (Version 5)
Quarter: 2020Q3

REPORT INFORMATION
  Report Type: Other
  Country: FR (occurrence: FR)
  Receive Date: 20110318
  Receipt Date: 20110504
  Transmission Date: 20201105
  Serious: Yes (Death)
  Sender: FDA-Public Use
  Company Number: FR-B.I. PHARMACEUTICALS,INC./RIDGEFIELD-2011-FF-00257FF

PATIENT
  Age: 73 Year
  Sex: Female
  Weight: 88 kg

DRUGS (17)
  1. PRADAXA [Suspect]
     Active Substance: DABIGATRAN ETEXILATE MESYLATE
     Indication: KNEE ARTHROPLASTY
     Dosage: 220 MG
     Route: 048
     Dates: start: 20110223, end: 20110228
  2. HYDROCHLOROTHIAZIDE\VALSARTAN [Suspect]
     Active Substance: HYDROCHLOROTHIAZIDE\VALSARTAN
     Indication: HYPERTENSION
     Dosage: 160 MG/25 MG
     Route: 048
     Dates: end: 20110301
  3. URAPIDIL [Suspect]
     Active Substance: URAPIDIL
     Indication: HYPERTENSION
     Dosage: 120 MG
     Route: 048
     Dates: end: 20110301
  4. HYDERGINE [Suspect]
     Active Substance: ERGOLOID MESYLATES
     Dosage: 4.5 MG
     Route: 048
     Dates: end: 20110301
  5. XYZALL [Suspect]
     Active Substance: LEVOCETIRIZINE DIHYDROCHLORIDE
     Dosage: 10 MG
     Route: 048
     Dates: end: 20110301
  6. PERFALGAN [Suspect]
     Active Substance: ACETAMINOPHEN
     Indication: ARTHRALGIA
     Dosage: 4 G
     Route: 042
     Dates: start: 20110222, end: 20110223
  7. TOPALGIC (FRANCE) [Suspect]
     Active Substance: TRAMADOL HYDROCHLORIDE
     Indication: ARTHRALGIA
     Dosage: 300 MG
     Route: 042
     Dates: start: 20110222, end: 20110223
  8. PRADAXA [Suspect]
     Active Substance: DABIGATRAN ETEXILATE MESYLATE
     Indication: THROMBOSIS PROPHYLAXIS
  9. INIPOMP [Suspect]
     Active Substance: PANTOPRAZOLE SODIUM
     Dosage: 40 MG
     Route: 048
     Dates: end: 20110301
  10. FERROUS SULFATE. [Suspect]
     Active Substance: FERROUS SULFATE
     Indication: ANAEMIA
     Route: 048
     Dates: start: 20110223, end: 20110301
  11. TOPALGIC (FRANCE) [Suspect]
     Active Substance: TRAMADOL HYDROCHLORIDE
     Dosage: 150 MG
     Route: 048
     Dates: start: 20110225, end: 20110301
  12. DAFALGAN [Suspect]
     Active Substance: ACETAMINOPHEN
     Indication: ARTHRALGIA
     Dosage: 3 G
     Route: 048
     Dates: start: 20110224, end: 20110301
  13. DIACEREIN [Suspect]
     Active Substance: DIACEREIN
     Indication: OSTEOARTHRITIS
     Dosage: 100 MG
     Route: 048
     Dates: end: 20110301
  14. FUROSEMIDE. [Suspect]
     Active Substance: FUROSEMIDE
     Indication: HYPERTENSION
     Dosage: 60 MG
     Route: 048
     Dates: end: 20110301
  15. XANAX [Suspect]
     Active Substance: ALPRAZOLAM
     Indication: ANXIETY
     Dosage: 0.5 MG
     Route: 048
     Dates: end: 20110301
  16. LOVENOX [Suspect]
     Active Substance: ENOXAPARIN SODIUM
     Indication: THROMBOSIS PROPHYLAXIS
     Dosage: 4000 U
     Route: 058
     Dates: start: 20110222, end: 20110222
  17. CELIPROLOL [Suspect]
     Active Substance: CELIPROLOL
     Indication: HYPERTENSION
     Dosage: 200 MG
     Route: 048
     Dates: end: 20110301

REACTIONS (2)
  - Haemoglobin decreased [Unknown]
  - Sudden death [Fatal]

NARRATIVE: CASE EVENT DATE: 20110223
